FAERS Safety Report 14448374 (Version 4)
Quarter: 2018Q1

REPORT INFORMATION
  Report Type: Report from Study
  Country: US (occurrence: US)
  Receive Date: 20180126
  Receipt Date: 20180323
  Transmission Date: 20180509
  Serious: Yes (Hospitalization)
  Sender: FDA-Public Use
  Company Number: US-VERTEX PHARMACEUTICALS-2018-000193

PATIENT
  Age: 15 Year
  Sex: Female

DRUGS (29)
  1. PHYTONADIONE. [Concomitant]
     Active Substance: PHYTONADIONE
     Dosage: 2 DOSAGE FORM
     Route: 048
     Dates: start: 20180119
  2. FLOVENT HFA [Concomitant]
     Active Substance: FLUTICASONE PROPIONATE
     Dosage: INHALE TWO PUFF(S) BY MOUTH 2 TIMES DAILY
     Route: 055
     Dates: start: 20171127
  3. INSULIN REGULAR                    /01223201/ [Concomitant]
     Active Substance: INSULIN BEEF
     Dosage: 5 UNITS FOR 4 CANS WITH OVERNIGHT FEED
     Dates: start: 20171115
  4. ORKAMBI [Suspect]
     Active Substance: IVACAFTOR\LUMACAFTOR
     Indication: CYSTIC FIBROSIS
     Dosage: 2 DOSAGE FORM, BID
     Route: 048
     Dates: start: 20160601
  5. NUTREN 1.0 [Concomitant]
     Dosage: 125ML/HR FOR 8 HRS OVERNIGHT. BOLUS FEEDINGS: 250ML, TID AS DIRECTED
     Dates: start: 20180118
  6. SODIUM CHLORIDE. [Concomitant]
     Active Substance: SODIUM CHLORIDE
     Dosage: INHALE 4 ML BY MOUTH 4 TIMES DAILY
     Route: 055
     Dates: start: 20171219
  7. COMPLETE MULTI VIT [Concomitant]
     Dosage: 1 DOSAGE FORM, QD
     Route: 048
     Dates: start: 20170614
  8. GLUCAGON. [Concomitant]
     Active Substance: GLUCAGON
     Dosage: UNK
     Dates: start: 20170511
  9. GLUCOSE [Concomitant]
     Active Substance: DEXTROSE
     Indication: BLOOD GLUCOSE DECREASED
     Dosage: 1 DOSAGE FORM 4 TIMES DAILY AS NEEDED
     Route: 048
     Dates: start: 20160822
  10. PREVACID [Concomitant]
     Active Substance: LANSOPRAZOLE
     Dosage: 1 DOSAGE FORM, BID
     Route: 048
     Dates: start: 20161206
  11. ALBUTEROL HFA [Concomitant]
     Active Substance: ALBUTEROL SULFATE
     Dosage: INHALE 2 PUFF(S) BY MOUTH 2 TIMES DAILY
     Route: 055
     Dates: start: 20171127
  12. MONTELUKAST [Concomitant]
     Active Substance: MONTELUKAST SODIUM
     Dosage: TAKE ONE TABLET BY MOUTH AT BEDTIME
     Route: 048
     Dates: start: 20170821
  13. SODIUM CHLORIDE. [Concomitant]
     Active Substance: SODIUM CHLORIDE
     Indication: NASAL DISCOMFORT
     Dosage: 2 SPRAY(S) IN BOTH NOSTRILS 4 TIMES DAILY AS NEEDED
     Route: 045
  14. SODIUM CHLORIDE. [Concomitant]
     Active Substance: SODIUM CHLORIDE
     Indication: NASAL DRYNESS
  15. URSODIOL. [Concomitant]
     Active Substance: URSODIOL
     Dosage: 1 DOSAGE FORM, BID
     Route: 048
     Dates: start: 20180122
  16. HUMALOG [Concomitant]
     Active Substance: INSULIN LISPRO
     Dosage: UPTO 50 UNITS PER DAY
     Dates: start: 20180118
  17. SERTRALINE [Concomitant]
     Active Substance: SERTRALINE HYDROCHLORIDE
     Dosage: PLACE ONE TABLET(S) (50 MG TOTAL) IN GASTROSTOMY TUBE ONCE A DAY
     Route: 048
     Dates: start: 20171220
  18. INSULIN NPH                        /01223208/ [Concomitant]
     Dosage: 5 UNITS FOR 4 CANS WITH OVERNIGHT FEED
     Dates: start: 20171115
  19. VITAMIN D3 [Concomitant]
     Active Substance: CHOLECALCIFEROL
     Dosage: 1 CAPSULE EVERY WEEK
     Route: 048
     Dates: start: 20170622
  20. MIRALAX [Concomitant]
     Active Substance: POLYETHYLENE GLYCOL 3350
     Dosage: PLACE ONE CAPFUL(S) (17 G TOTAL) IN GASTROSTOMY TUBE 2 TIMES DAILY
     Route: 048
     Dates: start: 20170504
  21. CREON [Concomitant]
     Active Substance: PANCRELIPASE AMYLASE\PANCRELIPASE LIPASE\PANCRELIPASE PROTEASE
     Dosage: TAKE 4 CAPSULES WITH MEALS, 3 CAPSULES WITH SNACKS
     Dates: start: 20170302
  22. NOVOLOG [Concomitant]
     Active Substance: INSULIN ASPART
     Dosage: UPTO 50 UNITS PER DAY
     Dates: start: 20180118
  23. NAPROXEN. [Concomitant]
     Active Substance: NAPROXEN
     Indication: PAIN
     Dosage: TAKE 15 ML (375 MG TOTAL) BY MOUTH 2 TIMES DAILY AS NEEDED
     Route: 048
     Dates: start: 20171108
  24. AMITRIPTYLINE [Concomitant]
     Active Substance: AMITRIPTYLINE
     Dosage: 1 TABLET(S) (10 MG TOTAL) IN GASTROSTOMY TUBE AT BEDTIME
     Route: 048
     Dates: start: 20171109
  25. ACETAMINOPHEN. [Concomitant]
     Active Substance: ACETAMINOPHEN
     Indication: PAIN
     Dosage: TAKE 18 ML (576 MG TOTAL) BY MOUTH EVERY 4 HOURS AS NEEDED
     Route: 048
     Dates: start: 20171002
  26. DORNASE ALFA. [Concomitant]
     Active Substance: DORNASE ALFA
     Dosage: 2.5 MILLILITER, BID
     Route: 055
     Dates: start: 20180111
  27. CYPROHEPTADINE. [Concomitant]
     Active Substance: CYPROHEPTADINE
     Dosage: ONE HALF TABLET(S) (2 MG TOTAL) IN GASTROSTOMY TUBE 4 TIMES DAILY
     Route: 048
     Dates: start: 20171121
  28. GABAPENTIN. [Concomitant]
     Active Substance: GABAPENTIN
     Dosage: 1 DOSAGE FORM, EVERY MORNING
     Route: 048
     Dates: start: 20171110
  29. BETHANECHOL [Concomitant]
     Active Substance: BETHANECHOL
     Dosage: 1 TABLET TID. TAKE WITH MEALS
     Route: 048
     Dates: start: 20170719

REACTIONS (2)
  - Infective pulmonary exacerbation of cystic fibrosis [Recovered/Resolved]
  - Aspartate aminotransferase increased [Unknown]

NARRATIVE: CASE EVENT DATE: 20160607
